FAERS Safety Report 6022052-8 (Version None)
Quarter: 2008Q4

REPORT INFORMATION
  Report Type: 
  Country: None (occurrence: None)
  Receive Date: 20081223
  Receipt Date: 20081208
  Transmission Date: 20090506
  Serious: Yes (Hospitalization)
  Sender: FDA-Public Use
  Company Number: KV200801034

PATIENT
  Age: 54 Year
  Sex: Female

DRUGS (9)
  1. MORPHINE SULFATE [Suspect]
     Indication: PAIN
     Dosage: 30 MG, BID, ORAL
     Route: 048
     Dates: start: 20080601, end: 20081001
  2. MORPHINE SULFATE [Suspect]
     Indication: PAIN
     Dosage: 30 MG,QID ORAL
     Route: 048
     Dates: start: 20080101, end: 20081001
  3. NEXIUM /01479302/ (ESOMPRAZOLE MAGNESIUM) [Concomitant]
  4. VALIUM /00017001/ (DIAZEPAM) [Concomitant]
  5. TRAZODONE HCL [Concomitant]
  6. POTASSIUM (POTASSIUM) [Concomitant]
  7. ASPIRIN [Concomitant]
  8. ATENOLOL [Concomitant]
  9. WATER PILL [Concomitant]

REACTIONS (3)
  - CARDIAC ARREST [None]
  - LOSS OF CONSCIOUSNESS [None]
  - PRODUCT QUALITY ISSUE [None]
